FAERS Safety Report 13601736 (Version 1)
Quarter: 2017Q2

REPORT INFORMATION
  Report Type: Spontaneous
  Country: US (occurrence: US)
  Receive Date: 20170601
  Receipt Date: 20170601
  Transmission Date: 20170830
  Serious: No
  Sender: FDA-Public Use
  Company Number: US-BAUSCH-BL-2016-022840

PATIENT
  Sex: Female

DRUGS (4)
  1. ELIDEL [Suspect]
     Active Substance: PIMECROLIMUS
     Indication: BLISTER
  2. ELIDEL [Suspect]
     Active Substance: PIMECROLIMUS
     Indication: HYPERSENSITIVITY
     Dosage: 5 TO 7 TIMES A DAY
     Route: 061
     Dates: start: 20160911
  3. ELIDEL [Suspect]
     Active Substance: PIMECROLIMUS
     Indication: ECZEMA
     Route: 061
     Dates: start: 2016
  4. TOCTINO [Concomitant]
     Active Substance: ALITRETINOIN
     Indication: HYPERSENSITIVITY

REACTIONS (7)
  - Eczema [Recovered/Resolved]
  - Blister [Recovered/Resolved]
  - Pain in extremity [Recovered/Resolved]
  - Headache [Recovering/Resolving]
  - Erythema [Recovered/Resolved]
  - Pruritus [Recovered/Resolved]
  - Off label use [Recovered/Resolved]

NARRATIVE: CASE EVENT DATE: 20160911
